FAERS Safety Report 14843219 (Version 1)
Quarter: 2018Q2

REPORT INFORMATION
  Report Type: Report from Study
  Country: EC (occurrence: EC)
  Receive Date: 20180503
  Receipt Date: 20180503
  Transmission Date: 20180711
  Serious: Yes (Death, Hospitalization)
  Sender: FDA-Public Use
  Company Number: PHHY2017EC090618

PATIENT
  Age: 76 Year
  Sex: Female

DRUGS (3)
  1. TASIGNA [Suspect]
     Active Substance: NILOTINIB
     Dosage: 200 MG, BID
     Route: 048
     Dates: start: 20170921, end: 20180309
  2. TASIGNA [Suspect]
     Active Substance: NILOTINIB
     Dosage: 400 MG, BID
     Route: 048
     Dates: start: 20160705, end: 20170920
  3. TASIGNA [Suspect]
     Active Substance: NILOTINIB
     Indication: CHRONIC MYELOID LEUKAEMIA
     Dosage: 300 MG, BID
     Route: 048
     Dates: start: 20160526, end: 20160704

REACTIONS (5)
  - General physical health deterioration [Unknown]
  - Pneumonia [Unknown]
  - Renal failure [Unknown]
  - Cardio-respiratory arrest [Fatal]
  - Cardiac failure [Fatal]

NARRATIVE: CASE EVENT DATE: 20170505
